FAERS Safety Report 18637530 (Version 1)
Quarter: 2020Q4

REPORT INFORMATION
  Report Type: Spontaneous
  Country: DE (occurrence: DE)
  Receive Date: 20201218
  Receipt Date: 20201218
  Transmission Date: 20210114
  Serious: Yes (Hospitalization, Other)
  Sender: FDA-Public Use
  Company Number: DE-MYLANLABS-2020M1102768

PATIENT
  Age: 67 Year
  Sex: Male

DRUGS (2)
  1. SEVELAMER [Suspect]
     Active Substance: SEVELAMER
     Dosage: 800 MILLIGRAM, BID
     Route: 048
  2. SEVELAMER [Suspect]
     Active Substance: SEVELAMER
     Indication: HYPERPHOSPHATAEMIA
     Dosage: 800 MILLIGRAM, BID
     Route: 048

REACTIONS (6)
  - Large intestine perforation [Unknown]
  - Drug ineffective [Unknown]
  - Neutrophil extracellular trap formation [Unknown]
  - Crystal deposit intestine [Unknown]
  - Gastrointestinal necrosis [Unknown]
  - Peritonitis [Unknown]

NARRATIVE: CASE EVENT DATE: 201904
